FAERS Safety Report 4396801-9 (Version None)
Quarter: 2004Q3

REPORT INFORMATION
  Report Type: 
  Country: None (occurrence: None)
  Receive Date: 20040709
  Receipt Date: 20040628
  Transmission Date: 20050211
  Serious: Yes (Hospitalization)
  Sender: FDA-Public Use
  Company Number: 2004221556GB

PATIENT
  Age: 76 Year
  Sex: Female

DRUGS (7)
  1. SULFASALAZINE [Suspect]
     Indication: RHEUMATOID ARTHRITIS
     Dosage: 500 MG, BID, ORAL
     Route: 048
     Dates: start: 20040414, end: 20040506
  2. ATORVASTATIN CALCIUM [Concomitant]
  3. THYROXIN (LEVOTHYROXINE SODIUM) [Concomitant]
  4. FOSAMAX [Concomitant]
  5. AMLODIPINE [Concomitant]
  6. BENDROFLUAZIDE [Concomitant]
  7. IMDUR [Concomitant]

REACTIONS (4)
  - JAUNDICE [None]
  - LIVER FUNCTION TEST ABNORMAL [None]
  - RASH [None]
  - WEIGHT DECREASED [None]
